FAERS Safety Report 8958413 (Version 1)
Quarter: 2012Q4

REPORT INFORMATION
  Report Type: Spontaneous
  Country: US (occurrence: None)
  Receive Date: 20121205
  Receipt Date: 20121205
  Transmission Date: 20130627
  Serious: Yes (Other)
  Sender: FDA-Public Use
  Company Number: None

PATIENT
  Age: 24 Year
  Sex: Male

DRUGS (1)
  1. RISPERDONE 4MG 1 HS [Suspect]
     Indication: PSYCHOSIS
     Dates: start: 20050302, end: 20080910

REACTIONS (3)
  - Hallucination [None]
  - Irritability [None]
  - Delusion [None]
